FAERS Safety Report 5726552-7 (Version None)
Quarter: 2008Q2

REPORT INFORMATION
  Report Type: 
  Country: None (occurrence: None)
  Receive Date: 20080502
  Receipt Date: 20080430
  Transmission Date: 20081010
  Serious: Yes (Other)
  Sender: FDA-Public Use
  Company Number: FR-RB-001064-08

PATIENT
  Sex: Male

DRUGS (3)
  1. BUPRENORPHINE HCL [Suspect]
     Indication: DRUG THERAPY
     Dosage: DOSE, FORM, ROUTE AND FREQUENCY ALL UNKNOWN
     Route: 065
  2. DIVARIUS [Concomitant]
     Indication: DRUG USE FOR UNKNOWN INDICATION
     Dosage: DOSE, ROUTE AND FREQUENCY UNKNOWN
     Route: 065
  3. ATARAX [Concomitant]
     Indication: DRUG USE FOR UNKNOWN INDICATION
     Dosage: DOSE, ROUTE AND FREQUENCY UNKNOWN
     Route: 065

REACTIONS (5)
  - ANXIETY [None]
  - DEPRESSION [None]
  - INTENTIONAL DRUG MISUSE [None]
  - SUICIDAL IDEATION [None]
  - WITHDRAWAL SYNDROME [None]
